FAERS Safety Report 5431144-3 (Version None)
Quarter: 2007Q3

REPORT INFORMATION
  Report Type: 
  Country: None (occurrence: None)
  Receive Date: 20070830
  Receipt Date: 20070312
  Transmission Date: 20080115
  Serious: No
  Sender: FDA-Public Use
  Company Number: A0641775A

PATIENT
  Age: 41 Year
  Sex: Female

DRUGS (3)
  1. WELLBUTRIN XL [Suspect]
     Indication: DRUG USE FOR UNKNOWN INDICATION
     Dosage: 150MG PER DAY
     Route: 048
  2. TRAZODONE HCL [Concomitant]
  3. BIRTH CONTROL [Concomitant]

REACTIONS (1)
  - TRICHORRHEXIS [None]
